FAERS Safety Report 4649825-8 (Version None)
Quarter: 2005Q2

REPORT INFORMATION
  Report Type: 
  Country: None (occurrence: None)
  Receive Date: 20050428
  Receipt Date: 20040802
  Transmission Date: 20051028
  Serious: Yes (Other)
  Sender: FDA-Public Use
  Company Number: 800086

PATIENT
  Age: 54 Year
  Sex: Female
  Weight: 47.2 kg

DRUGS (10)
  1. EXTRANEAL [Suspect]
     Indication: PERITONEAL DIALYSIS
     Dosage: 1.5 L;QD;INTRAPERITONEAL
     Route: 033
     Dates: start: 20040426, end: 20040729
  2. DIANEAL [Concomitant]
  3. ALLOPURINOL [Concomitant]
  4. PURSENNID [Concomitant]
  5. SELBEX [Concomitant]
  6. GLYCINE HCL [Concomitant]
  7. ADONA [Concomitant]
  8. CALCIUM CARBONATE [Concomitant]
  9. DEPAS [Concomitant]
  10. EPOETIN ALFA [Concomitant]

REACTIONS (6)
  - BLOOD POTASSIUM DECREASED [None]
  - BLOOD PRESSURE SYSTOLIC DECREASED [None]
  - DEHYDRATION [None]
  - DISEASE RECURRENCE [None]
  - HYPOTENSION [None]
  - WEIGHT DECREASED [None]
